FAERS Safety Report 20770281 (Version 2)
Quarter: 2022Q2

REPORT INFORMATION
  Report Type: Report from Study
  Country: CA (occurrence: CA)
  Receive Date: 20220429
  Receipt Date: 20220601
  Transmission Date: 20220720
  Serious: Yes (Hospitalization)
  Sender: FDA-Public Use
  Company Number: CA-JNJFOC-20211111408

PATIENT
  Age: 71 Year
  Sex: Female

DRUGS (2)
  1. SIMPONI [Suspect]
     Active Substance: GOLIMUMAB
     Indication: Rheumatoid arthritis
     Dosage: STRENGTH = 50 MG
     Route: 058
     Dates: start: 20180626
  2. SIMPONI [Suspect]
     Active Substance: GOLIMUMAB
     Dosage: LAST SIMPONI INJECTION RECEIVED ON 06-10-2021
     Route: 058
     Dates: start: 20180622, end: 20211126

REACTIONS (4)
  - Pericarditis [Unknown]
  - Heart valve replacement [Recovered/Resolved]
  - Off label use [Unknown]
  - Product use issue [Unknown]

NARRATIVE: CASE EVENT DATE: 20210801
